FAERS Safety Report 17029587 (Version 1)
Quarter: 2019Q4

REPORT INFORMATION
  Report Type: Report from Study
  Country: DE (occurrence: DE)
  Receive Date: 20191114
  Receipt Date: 20191114
  Transmission Date: 20200122
  Serious: Yes (Other)
  Sender: FDA-Public Use
  Company Number: DE-BIOGEN-2019BI00805457

PATIENT
  Sex: Female

DRUGS (5)
  1. TECFIDERA [Suspect]
     Active Substance: DIMETHYL FUMARATE
     Route: 065
     Dates: start: 201903
  2. VITAMIN D [Concomitant]
     Active Substance: VITAMIN D NOS
     Indication: SELF-MEDICATION
     Route: 065
  3. OMEGA 3 [Concomitant]
     Active Substance: OMEGA-3 FATTY ACIDS
     Indication: SELF-MEDICATION
     Route: 065
  4. FOLIC ACID. [Concomitant]
     Active Substance: FOLIC ACID
     Indication: SELF-MEDICATION
     Route: 065
     Dates: start: 201802
  5. TECFIDERA [Suspect]
     Active Substance: DIMETHYL FUMARATE
     Indication: MULTIPLE SCLEROSIS
     Route: 048
     Dates: start: 20170202

REACTIONS (3)
  - Maternal exposure during pregnancy [Recovered/Resolved]
  - Multiple sclerosis [Recovered/Resolved]
  - Fatigue [Not Recovered/Not Resolved]
